FAERS Safety Report 6551404-2 (Version None)
Quarter: 2010Q1

REPORT INFORMATION
  Report Type: 
  Country: None (occurrence: None)
  Receive Date: 20100126
  Receipt Date: 20100114
  Transmission Date: 20100710
  Serious: Yes (Other)
  Sender: FDA-Public Use
  Company Number: IE-WYE-G04774009

PATIENT
  Age: 28 Year
  Sex: Female

DRUGS (8)
  1. VENLAFAXINE HCL [Suspect]
     Indication: DEPRESSION
     Dosage: INCREASED TO 300 MG PER DAY
     Route: 048
     Dates: start: 20090401
  2. VENLAFAXINE HCL [Suspect]
     Dosage: THEN INCREASED TO 375MG PER DAY
     Route: 048
  3. TOPAMAX [Concomitant]
     Indication: MIGRAINE
  4. ALLEGRO [Concomitant]
     Indication: MIGRAINE
     Dosage: 2.5MG ON P.R.N BASIS
  5. FOLIC ACID [Concomitant]
  6. NEXIUM [Concomitant]
  7. AMITRIPTYLINE HCL [Concomitant]
     Dosage: 25MG AT NIGHT
  8. METFORMIN HCL [Concomitant]
     Indication: POLYCYSTIC OVARIES

REACTIONS (3)
  - DRUG EFFECT DECREASED [None]
  - GASTRIC BYPASS [None]
  - UVEITIS [None]
